FAERS Safety Report 8936347 (Version 2)
Quarter: 2012Q4

REPORT INFORMATION
  Report Type: 
  Country: US (occurrence: US)
  Receive Date: 20121130
  Receipt Date: 20121220
  Transmission Date: 20130627
  Serious: Yes (Other)
  Sender: FDA-Public Use
  Company Number: US-009507513-1211USA011464

PATIENT
  Age: 63 Year
  Sex: Male

DRUGS (9)
  1. JANUVIA [Suspect]
     Indication: DIABETES MELLITUS
     Dosage: 100 mg, qd
     Route: 048
     Dates: start: 201010, end: 201210
  2. JANUVIA [Suspect]
     Dosage: split 100 mg Januvia tablet and took one tablet half daily
     Route: 048
     Dates: start: 201210, end: 201210
  3. JANUVIA [Suspect]
     Dosage: 100 mg, qd
     Route: 048
     Dates: start: 201210
  4. FUROSEMIDE [Concomitant]
  5. LISINOPRIL [Concomitant]
  6. METFORMIN [Concomitant]
     Dosage: 500 mg, bid
  7. FLECAINIDE ACETATE [Concomitant]
     Dosage: 100 mg, bid
  8. METOPROLOL [Concomitant]
  9. LEXAPRO [Concomitant]

REACTIONS (4)
  - Prostatomegaly [Recovered/Resolved]
  - Dysuria [Recovered/Resolved]
  - White blood cell count increased [Recovered/Resolved]
  - Infection [Recovered/Resolved]
